FAERS Safety Report 23882818 (Version 1)
Quarter: 2024Q2

REPORT INFORMATION
  Report Type: Spontaneous
  Country: DE (occurrence: DE)
  Receive Date: 20240522
  Receipt Date: 20240522
  Transmission Date: 20240715
  Serious: Yes (Death, Other)
  Sender: FDA-Public Use
  Company Number: US-PPDUS-2023ST005216

PATIENT
  Age: 82 Year
  Sex: Male

DRUGS (1)
  1. ELZONRIS [Suspect]
     Active Substance: TAGRAXOFUSP-ERZS
     Indication: Blastic plasmacytoid dendritic cell neoplasia
     Route: 042

REACTIONS (3)
  - Blastic plasmacytoid dendritic cell neoplasia [Fatal]
  - Neoplasm recurrence [Fatal]
  - Acute kidney injury [Unknown]
